FAERS Safety Report 8964177 (Version 1)
Quarter: 2012Q4

REPORT INFORMATION
  Report Type: 
  Country: CA (occurrence: CA)
  Receive Date: 20121213
  Receipt Date: 20121213
  Transmission Date: 20130627
  Serious: Yes (Hospitalization, Other)
  Sender: FDA-Public Use
  Company Number: CA-B.I. PHARMACEUTICALS,INC./RIDGEFIELD-2012-CN-02515CN

PATIENT
  Age: 63 Year
  Sex: Male
  Weight: 80 kg

DRUGS (6)
  1. PRADAX [Suspect]
     Dosage: 220 mg
     Route: 048
  2. ASA [Concomitant]
  3. HCTZ [Concomitant]
  4. METOPROLOL [Concomitant]
  5. PANTOLOC [Concomitant]
  6. VASOTEC [Concomitant]

REACTIONS (1)
  - Femoral artery embolism [Recovered/Resolved]
